FAERS Safety Report 10675771 (Version 7)
Quarter: 2016Q1

REPORT INFORMATION
  Report Type: Spontaneous
  Country: CA (occurrence: CA)
  Receive Date: 20141225
  Receipt Date: 20160222
  Transmission Date: 20160525
  Serious: Yes (Hospitalization)
  Sender: FDA-Public Use
  Company Number: CA-ROCHE-1512025

PATIENT
  Age: 37 Year
  Sex: Male

DRUGS (4)
  1. XOLAIR [Suspect]
     Active Substance: OMALIZUMAB
     Route: 058
     Dates: end: 201408
  2. VENTOLIN [Concomitant]
     Active Substance: ALBUTEROL SULFATE
  3. XOLAIR [Suspect]
     Active Substance: OMALIZUMAB
     Indication: ASTHMA
     Route: 058
     Dates: start: 20140527
  4. ATROVENT [Concomitant]
     Active Substance: IPRATROPIUM BROMIDE

REACTIONS (10)
  - Mood swings [Unknown]
  - Musculoskeletal chest pain [Unknown]
  - Obstructive airways disorder [Unknown]
  - Headache [Unknown]
  - Lung disorder [Unknown]
  - Malaise [Unknown]
  - Quality of life decreased [Unknown]
  - Asthma [Unknown]
  - Feeling abnormal [Unknown]
  - Nasopharyngitis [Unknown]

NARRATIVE: CASE EVENT DATE: 201408
